FAERS Safety Report 14560360 (Version 3)
Quarter: 2018Q2

REPORT INFORMATION
  Report Type: Report from Study
  Country: IL (occurrence: IL)
  Receive Date: 20180222
  Receipt Date: 20180424
  Transmission Date: 20180711
  Serious: Yes (Death, Hospitalization, Other)
  Sender: FDA-Public Use
  Company Number: IL-ASTRAZENECA-2018SE20491

PATIENT
  Age: 70 Year
  Sex: Male
  Weight: 74 kg

DRUGS (1)
  1. DURVALUMAB. [Suspect]
     Active Substance: DURVALUMAB
     Route: 042
     Dates: start: 20171130

REACTIONS (4)
  - Infection [Fatal]
  - Mediastinitis [Fatal]
  - Oesophageal fistula [Recovering/Resolving]
  - Perforated ulcer [Unknown]

NARRATIVE: CASE EVENT DATE: 20180131
